FAERS Safety Report 6611486-6 (Version None)
Quarter: 2010Q1

REPORT INFORMATION
  Report Type: 
  Country: None (occurrence: None)
  Receive Date: 20100301
  Receipt Date: 20100301
  Transmission Date: 20100710
  Serious: Yes (Hospitalization)
  Sender: FDA-Public Use
  Company Number: None

PATIENT
  Sex: Male
  Weight: 80.6 kg

DRUGS (8)
  1. PEMETREXED [Suspect]
     Indication: NON-SMALL CELL LUNG CANCER
     Dosage: 400MG/M2 IV Q2 WEEKS
     Route: 042
     Dates: start: 20100104, end: 20100201
  2. GEMCITABINE HCL [Suspect]
     Indication: NON-SMALL CELL LUNG CANCER
     Dosage: 1200MG/M2 Q2 WEEKS
     Dates: start: 20100104, end: 20100201
  3. AVASTIN [Suspect]
     Indication: NON-SMALL CELL LUNG CANCER
     Dosage: 10 MG/KG Q2 WEEKS
     Dates: start: 20100104, end: 20100201
  4. AMLODIPINE [Concomitant]
  5. OMEPRAZOLE [Concomitant]
  6. ALLOPURINOL [Concomitant]
  7. SYMBICORT [Concomitant]
  8. HYDROCODONE BITARTRATE AND ACETAMINOPHEN [Concomitant]

REACTIONS (3)
  - DYSPNOEA [None]
  - OXYGEN SATURATION DECREASED [None]
  - RESPIRATORY FAILURE [None]
